FAERS Safety Report 4336085-0 (Version None)
Quarter: 2004Q2

REPORT INFORMATION
  Report Type: 
  Country: None (occurrence: None)
  Receive Date: 20040406
  Receipt Date: 20040329
  Transmission Date: 20050107
  Serious: Yes (Hospitalization)
  Sender: FDA-Public Use
  Company Number: TCI2004A01283

PATIENT
  Age: 73 Year
  Sex: Male

DRUGS (3)
  1. ACTOS [Suspect]
     Indication: DIABETES MELLITUS NON-INSULIN-DEPENDENT
     Dosage: 30 MG (30 MG, 1 D) PER ORAL
     Route: 048
     Dates: start: 20030320, end: 20030710
  2. BASEN (VOGLIBOSE) [Suspect]
     Indication: DIABETES MELLITUS NON-INSULIN-DEPENDENT
     Dosage: 0.9 MG (0.9 MG, 1 D) PER ORAL
     Route: 048
  3. GLYBURIDE [Concomitant]

REACTIONS (7)
  - COUGH [None]
  - DYSPNOEA EXERTIONAL [None]
  - PLEURAL EFFUSION [None]
  - SINUS TACHYCARDIA [None]
  - SUPRAVENTRICULAR EXTRASYSTOLES [None]
  - VENTRICULAR EXTRASYSTOLES [None]
  - VENTRICULAR HYPOKINESIA [None]
